FAERS Safety Report 7711620-0 (Version None)
Quarter: 2011Q3

REPORT INFORMATION
  Report Type: 
  Country: None (occurrence: None)
  Receive Date: 20110826
  Receipt Date: 20110531
  Transmission Date: 20111222
  Serious: No
  Sender: FDA-Public Use
  Company Number: US-BRISTOL-MYERS SQUIBB COMPANY-15792336

PATIENT
  Age: 66 Year
  Sex: Male

DRUGS (5)
  1. ASPIRIN [Concomitant]
  2. ONGLYZA [Suspect]
  3. GLUCOVANCE [Concomitant]
  4. LISINOPRIL [Concomitant]
  5. SIMAVASTATIN [Concomitant]

REACTIONS (1)
  - NASOPHARYNGITIS [None]
